FAERS Safety Report 8088032-6 (Version None)
Quarter: 2012Q1

REPORT INFORMATION
  Report Type: 
  Country: None (occurrence: None)
  Receive Date: 20120128
  Receipt Date: 20110602
  Transmission Date: 20120608
  Serious: No
  Sender: FDA-Public Use
  Company Number: US-ABBOTT-11P-163-0728954-00

PATIENT
  Age: 49 Year
  Sex: Male

DRUGS (9)
  1. COUMADIN [Concomitant]
     Indication: ATRIAL FIBRILLATION
  2. NITRO-BID [Concomitant]
     Indication: ANGINA PECTORIS
  3. PLAVIX [Concomitant]
     Indication: ATRIAL FIBRILLATION
  4. LISINOPRIL [Concomitant]
     Indication: ATRIAL FIBRILLATION
  5. HUMIRA [Suspect]
     Indication: PSORIATIC ARTHROPATHY
     Dosage: INITIAL DOSE
     Dates: start: 20110527, end: 20110527
  6. HUMIRA [Suspect]
  7. SIMVASTATIN [Concomitant]
     Indication: ATRIAL FIBRILLATION
  8. VERAPAMIL [Concomitant]
     Indication: ARTERIOSPASM CORONARY
  9. HYDROCHLOROTHIAZIDE [Concomitant]
     Indication: ATRIAL FIBRILLATION

REACTIONS (4)
  - DYSPNOEA [None]
  - PAIN IN EXTREMITY [None]
  - PSORIATIC ARTHROPATHY [None]
  - HYPOAESTHESIA [None]
